FAERS Safety Report 6991412-0 (Version None)
Quarter: 2010Q3

REPORT INFORMATION
  Report Type: 
  Country: None (occurrence: None)
  Receive Date: 20100916
  Receipt Date: 20090827
  Transmission Date: 20110219
  Serious: No
  Sender: FDA-Public Use
  Company Number: US-WYE-H10766609

PATIENT
  Age: 69 Year
  Sex: Male
  Weight: 79.45 kg

DRUGS (3)
  1. ADVIL PM [Suspect]
     Indication: SLEEP DISORDER
     Dosage: 1/2 CAPLET AS NEEDED
     Route: 048
  2. SYNTHROID [Concomitant]
  3. VASOTEC [Concomitant]

REACTIONS (2)
  - CONDITION AGGRAVATED [None]
  - PROSTATIC SPECIFIC ANTIGEN INCREASED [None]
